FAERS Safety Report 13384117 (Version 1)
Quarter: 2017Q1

REPORT INFORMATION
  Report Type: Spontaneous
  Country: US (occurrence: US)
  Receive Date: 20170329
  Receipt Date: 20170329
  Transmission Date: 20170429
  Serious: Yes (Hospitalization, Other)
  Sender: FDA-Public Use
  Company Number: US-ELI_LILLY_AND_COMPANY-US201607011900

PATIENT
  Age: 62 Year
  Sex: Female

DRUGS (4)
  1. CYMBALTA [Suspect]
     Active Substance: DULOXETINE HYDROCHLORIDE
     Dosage: 120 MG, QD
     Route: 048
     Dates: start: 20120621
  2. CYMBALTA [Suspect]
     Active Substance: DULOXETINE HYDROCHLORIDE
     Dosage: 60 MG, QD
     Route: 048
  3. CYMBALTA [Suspect]
     Active Substance: DULOXETINE HYDROCHLORIDE
     Indication: PAIN
     Dosage: 60 MG, QD
     Route: 048
     Dates: start: 20110912
  4. CYMBALTA [Suspect]
     Active Substance: DULOXETINE HYDROCHLORIDE
     Indication: DEPRESSION
     Dosage: 20 MG, QD
     Route: 048
     Dates: start: 20110621

REACTIONS (22)
  - Neck injury [Unknown]
  - Affect lability [Unknown]
  - Joint injury [Unknown]
  - Lip injury [Unknown]
  - Nausea [Unknown]
  - Irritability [Unknown]
  - Dizziness [Unknown]
  - Neck injury [Unknown]
  - Dysphoria [Unknown]
  - Nightmare [Unknown]
  - Diplegia [Unknown]
  - Drug withdrawal syndrome [Unknown]
  - Contusion [Unknown]
  - Vertigo [Unknown]
  - Headache [Unknown]
  - Fall [Unknown]
  - Fall [Unknown]
  - Agitation [Unknown]
  - Head injury [Unknown]
  - Suicidal ideation [Unknown]
  - Paraesthesia [Unknown]
  - Fatigue [Unknown]

NARRATIVE: CASE EVENT DATE: 20110912
